FAERS Safety Report 9504737 (Version 1)
Quarter: 2013Q1

REPORT INFORMATION
  Report Type: Spontaneous
  Country: US (occurrence: None)
  Receive Date: 20130225
  Receipt Date: 20130225
  Transmission Date: 20140127
  Serious: Yes (Hospitalization)
  Sender: FDA-Public Use
  Company Number: 2012-513

PATIENT
  Age: 84 Year
  Sex: Female

DRUGS (1)
  1. PRIALT (ZICONOTIDE) INTRATHECAL INFUSION [Suspect]
     Dosage: ONCE/HOUR
     Route: 037
     Dates: start: 20120313, end: 2012

REACTIONS (2)
  - Hallucination, auditory [None]
  - Affect lability [None]
